FAERS Safety Report 5799000-9 (Version None)
Quarter: 2008Q3

REPORT INFORMATION
  Report Type: 
  Country: None (occurrence: None)
  Receive Date: 20080701
  Receipt Date: 20080616
  Transmission Date: 20090109
  Serious: Yes (Other)
  Sender: FDA-Public Use
  Company Number: 2008S1010722

PATIENT
  Age: 63 Year
  Sex: Female
  Weight: 54.4316 kg

DRUGS (5)
  1. FENTANYL TRANSDERMAL SYSTEM [Suspect]
     Indication: MUSCULOSKELETAL PAIN
     Dosage: 100 UG;EVERY HOUR;TRANSDERMAL
     Route: 062
     Dates: start: 20080401
  2. WELLBUTRIN [Concomitant]
  3. ALPRAZOLAM [Concomitant]
  4. LIDOCAINE [Concomitant]
  5. ENDOCET [Concomitant]

REACTIONS (4)
  - DRUG DEPENDENCE [None]
  - HYPERHIDROSIS [None]
  - IRRITABILITY [None]
  - RESTLESSNESS [None]
